FAERS Safety Report 4977881-6 (Version None)
Quarter: 2006Q2

REPORT INFORMATION
  Report Type: 
  Country: None (occurrence: None)
  Receive Date: 20060417
  Receipt Date: 20060322
  Transmission Date: 20061013
  Serious: Yes (Other)
  Sender: FDA-Public Use
  Company Number: 2006040337

PATIENT
  Age: 57 Year
  Sex: Male
  Weight: 83.9154 kg

DRUGS (3)
  1. SUTENT [Suspect]
     Indication: RENAL CELL CARCINOMA STAGE IV
     Dosage: 50 MG (50 MG, 1 IN 1 D), ORAL
     Route: 048
     Dates: start: 20060221
  2. HYDROCHLOROTHIAZIDE [Concomitant]
  3. VITAMINS (VITAMINS) [Concomitant]

REACTIONS (9)
  - BLOOD PRESSURE INCREASED [None]
  - CHEILITIS [None]
  - EAR PAIN [None]
  - FEELING ABNORMAL [None]
  - GINGIVAL PAIN [None]
  - GLOSSODYNIA [None]
  - MUSCLE STRAIN [None]
  - TEMPERATURE INTOLERANCE [None]
  - TONGUE DISORDER [None]
